FAERS Safety Report 6089333-3 (Version None)
Quarter: 2009Q1

REPORT INFORMATION
  Report Type: 
  Country: None (occurrence: None)
  Receive Date: 20090224
  Receipt Date: 20090213
  Transmission Date: 20090719
  Serious: Yes (Other)
  Sender: FDA-Public Use
  Company Number: PHHY2009US02865

PATIENT
  Sex: Female
  Weight: 123 kg

DRUGS (9)
  1. EXJADE [Suspect]
     Indication: POLYCYTHAEMIA VERA
     Dosage: 1000 MG DAILY
     Route: 048
     Dates: start: 20090105, end: 20090119
  2. EXJADE [Suspect]
     Indication: IRON OVERLOAD
  3. ZOFRAN [Concomitant]
     Dosage: 8 MG, Q8H
  4. VICODIN [Concomitant]
     Dosage: 50 MG, Q6H
  5. ALVEN [Concomitant]
     Dosage: 1 MG, Q6H
     Route: 048
  6. BENTYL [Concomitant]
     Dosage: 20 MG, Q8H
     Route: 048
  7. COMPAZINE [Concomitant]
     Dosage: 10 MG, Q6H
     Route: 048
  8. DARVOCET [Concomitant]
     Dosage: 100 MG, Q6H
     Route: 048
  9. ONDANSETRON [Concomitant]
     Dosage: 8 MG, Q8H
     Route: 048

REACTIONS (2)
  - FATIGUE [None]
  - HALLUCINATION [None]
